FAERS Safety Report 8473682-5 (Version None)
Quarter: 2012Q2

REPORT INFORMATION
  Report Type: 
  Country: None (occurrence: None)
  Receive Date: 20120628
  Receipt Date: 20110920
  Transmission Date: 20120825
  Serious: Yes (Death)
  Sender: FDA-Public Use
  Company Number: US-MYLANLABS-2011S1017849

PATIENT
  Age: 64 Year
  Sex: Male

DRUGS (8)
  1. PRAVACHOL [Concomitant]
  2. PEPCID [Concomitant]
  3. CLOZAPINE [Suspect]
     Route: 048
  4. SYNTHROID [Concomitant]
  5. SPIRIVA [Concomitant]
  6. MOM [Concomitant]
  7. COLACE [Concomitant]
  8. LOPRESSOR [Concomitant]

REACTIONS (1)
  - AORTIC ANEURYSM [None]
